FAERS Safety Report 24057486 (Version 3)
Quarter: 2024Q3

REPORT INFORMATION
  Report Type: Spontaneous
  Country: IT (occurrence: IT)
  Receive Date: 20240706
  Receipt Date: 20240808
  Transmission Date: 20241016
  Serious: Yes (Hospitalization, Other)
  Sender: AUROBINDO
  Company Number: IT-DOCGEN-2403992

PATIENT
  Age: 64 Year
  Sex: Female

DRUGS (10)
  1. MONTELUKAST [Suspect]
     Active Substance: MONTELUKAST SODIUM
     Indication: Chronic rhinosinusitis with nasal polyps
     Dosage: UNK
     Route: 065
  2. BECLOMETHASONE\FORMOTEROL [Suspect]
     Active Substance: BECLOMETHASONE\FORMOTEROL
     Indication: Chronic rhinosinusitis with nasal polyps
     Dosage: 1 DOSAGE FORM, ONCE A DAY
  3. METHYLPREDNISOLONE [Suspect]
     Active Substance: METHYLPREDNISOLONE
     Indication: Eosinophilia
     Dosage: 1 GRAM, ONCE A DAY (RECEIVED FOR 3 DAYS)
     Route: 042
  4. MOMETASONE FUROATE [Suspect]
     Active Substance: MOMETASONE FUROATE
     Indication: Chronic rhinosinusitis with nasal polyps
     Dosage: 100 MICROGRAM, ONCE A DAY
     Route: 045
  5. PREDNISONE [Suspect]
     Active Substance: PREDNISONE
     Indication: Eosinophilia
     Dosage: 50 MILLIGRAM
     Route: 048
  6. PREDNISONE [Suspect]
     Active Substance: PREDNISONE
     Indication: Chronic rhinosinusitis with nasal polyps
     Dosage: 25 MILLIGRAM (FOR 7-10 DAYS EVERY 12 MONTHS)
     Route: 048
  7. TIOTROPIUM BROMIDE [Suspect]
     Active Substance: TIOTROPIUM BROMIDE
     Indication: Chronic rhinosinusitis with nasal polyps
     Dosage: 5 MICROGRAM, ONCE A DAY
     Route: 065
  8. DUPILUMAB [Concomitant]
     Active Substance: DUPILUMAB
     Indication: Chronic rhinosinusitis with nasal polyps
     Dosage: 300 MILLIGRAM
     Route: 058
  9. DUPILUMAB [Concomitant]
     Active Substance: DUPILUMAB
     Dosage: 600 MILLIGRAM (RECEIVED 600MG, WHICH WAS FOLLOWED BY 300MG SC EVERY 2 WEEKS)
     Route: 058
     Dates: start: 20230220
  10. ALBUTEROL [Concomitant]
     Active Substance: ALBUTEROL
     Indication: Chronic rhinosinusitis with nasal polyps
     Dosage: 400 MICROGRAM

REACTIONS (4)
  - Cardiac ventricular thrombosis [Recovering/Resolving]
  - Thrombosis [Unknown]
  - Therapy partial responder [Unknown]
  - Drug ineffective [Unknown]
